FAERS Safety Report 18480780 (Version 2)
Quarter: 2021Q3

REPORT INFORMATION
  Report Type: Spontaneous
  Country: GB (occurrence: NL)
  Receive Date: 20201109
  Receipt Date: 20210817
  Transmission Date: 20211014
  Serious: Yes (Other)
  Sender: FDA-Public Use
  Company Number: GB-MYLANLABS-2020M1092839

PATIENT
  Sex: Female

DRUGS (4)
  1. MEROPENEM. [Suspect]
     Active Substance: MEROPENEM
     Indication: PRODUCT USED FOR UNKNOWN INDICATION
     Dosage: UNK
     Route: 065
  2. COLOBREATHE [Concomitant]
     Active Substance: COLISTIMETHATE SODIUM
     Indication: PRODUCT USED FOR UNKNOWN INDICATION
     Dosage: UNK
     Route: 065
  3. COLOMYCIN                          /00013203/ [Suspect]
     Active Substance: COLISTIN SULFATE
     Indication: PRODUCT USED FOR UNKNOWN INDICATION
     Dosage: UNK
     Route: 065
  4. TOBI PODHALER [Suspect]
     Active Substance: TOBRAMYCIN
     Indication: PRODUCT USED FOR UNKNOWN INDICATION
     Dosage: UNK
     Route: 065

REACTIONS (9)
  - Vomiting [Recovering/Resolving]
  - Infection [Not Recovered/Not Resolved]
  - Lethargy [Recovering/Resolving]
  - Dizziness [Recovering/Resolving]
  - Retching [Recovering/Resolving]
  - Feeling abnormal [Recovering/Resolving]
  - Malaise [Recovering/Resolving]
  - Presyncope [Recovering/Resolving]
  - Nausea [Recovering/Resolving]
